FAERS Safety Report 9069091 (Version 1)
Quarter: 2013Q1

REPORT INFORMATION
  Report Type: Spontaneous
  Country: US (occurrence: US)
  Receive Date: 20130215
  Receipt Date: 20130215
  Transmission Date: 20140127
  Serious: Yes (Hospitalization)
  Sender: FDA-Public Use
  Company Number: US-BAYER-2013-019239

PATIENT
  Age: 34 Year
  Sex: Female
  Weight: 63.04 kg

DRUGS (6)
  1. YASMIN [Suspect]
  2. YAZ [Suspect]
  3. OCELLA [Suspect]
  4. ASPIRIN [Concomitant]
     Dosage: 325 MG, PER DAY
     Route: 048
  5. ECOTRIN [Concomitant]
  6. MULTIVITAMIN [Concomitant]

REACTIONS (2)
  - Pulmonary embolism [None]
  - Deep vein thrombosis [None]
